FAERS Safety Report 20957900 (Version 7)
Quarter: 2025Q2

REPORT INFORMATION
  Report Type: Report from Study
  Country: US (occurrence: US)
  Receive Date: 20220614
  Receipt Date: 20250609
  Transmission Date: 20250716
  Serious: Yes (Other)
  Sender: TAKEDA
  Company Number: US-TAKEDA-US201728989

PATIENT
  Age: 52 Year
  Sex: Female

DRUGS (7)
  1. HUMAN IMMUNOGLOBULIN G [Suspect]
     Active Substance: HUMAN IMMUNOGLOBULIN G
     Indication: Hypogammaglobulinaemia
     Dosage: 20 GRAM, 1/WEEK
  2. HUMAN IMMUNOGLOBULIN G [Suspect]
     Active Substance: HUMAN IMMUNOGLOBULIN G
     Indication: Primary immunodeficiency syndrome
     Dosage: 20 GRAM, 1/WEEK
  3. HUMAN IMMUNOGLOBULIN G [Suspect]
     Active Substance: HUMAN IMMUNOGLOBULIN G
     Dosage: 3 GRAM, 1/WEEK
  4. HUMAN IMMUNOGLOBULIN G [Suspect]
     Active Substance: HUMAN IMMUNOGLOBULIN G
  5. CUVITRU [Suspect]
     Active Substance: HUMAN IMMUNOGLOBULIN G
     Indication: Primary immunodeficiency syndrome
  6. CUVITRU [Suspect]
     Active Substance: HUMAN IMMUNOGLOBULIN G
     Indication: Hypogammaglobulinaemia
  7. LAMISIL [Suspect]
     Active Substance: TERBINAFINE HYDROCHLORIDE
     Indication: Product used for unknown indication

REACTIONS (18)
  - Diabetes mellitus inadequate control [Unknown]
  - Psychotic disorder [Unknown]
  - Lyme disease [Not Recovered/Not Resolved]
  - Fungal infection [Unknown]
  - Omphalitis [Unknown]
  - COVID-19 pneumonia [Unknown]
  - Memory impairment [Unknown]
  - Gout [Unknown]
  - Herpes zoster [Unknown]
  - Post-acute COVID-19 syndrome [Unknown]
  - Pain [Unknown]
  - Post-traumatic stress disorder [Unknown]
  - Brain fog [Unknown]
  - Treatment noncompliance [Not Recovered/Not Resolved]
  - Road traffic accident [Unknown]
  - Insurance issue [Not Recovered/Not Resolved]
  - Inappropriate schedule of product administration [Unknown]
  - Infusion site erythema [Unknown]

NARRATIVE: CASE EVENT DATE: 20230101
